FAERS Safety Report 6248091-X (Version None)
Quarter: 2009Q2

REPORT INFORMATION
  Report Type: 
  Country: None (occurrence: None)
  Receive Date: 20090629
  Receipt Date: 20071003
  Transmission Date: 20091009
  Serious: Yes (Other)
  Sender: FDA-Public Use
  Company Number: US-ASTRAZENECA-2006UW23306

PATIENT
  Age: 15331 Day
  Sex: Female
  Weight: 101.6 kg

DRUGS (12)
  1. SEROQUEL [Suspect]
     Indication: DEPRESSION
     Dosage: 200 TO 300 MG
     Route: 048
     Dates: start: 20021111
  2. SEROQUEL [Suspect]
     Indication: PSYCHOTIC DISORDER
     Dosage: 200 TO 300 MG
     Route: 048
     Dates: start: 20021111
  3. SEROQUEL [Suspect]
     Dosage: 100-300 MG
     Route: 048
     Dates: start: 20021016
  4. SEROQUEL [Suspect]
     Dosage: 100-300 MG
     Route: 048
     Dates: start: 20021016
  5. CLOZARIL [Concomitant]
  6. THORAZINE [Concomitant]
  7. ZYPREXA [Concomitant]
  8. ZOLOFT [Concomitant]
     Route: 048
     Dates: start: 20030108
  9. KLONOPIN [Concomitant]
     Dates: start: 20030108
  10. KETOROLAC TROMETHAMINE [Concomitant]
     Dosage: 60 MG/2ML
     Dates: start: 20021115
  11. METOPROLOL SUCCINATE [Concomitant]
     Dates: start: 20030119
  12. RANITIDINE [Concomitant]
     Dates: start: 20010419

REACTIONS (4)
  - DIABETES MELLITUS [None]
  - PANCREATITIS [None]
  - PANCREATITIS ACUTE [None]
  - PANCREATITIS CHRONIC [None]
